FAERS Safety Report 22093407 (Version 2)
Quarter: 2023Q2

REPORT INFORMATION
  Report Type: Spontaneous
  Country: CA (occurrence: CA)
  Receive Date: 20230314
  Receipt Date: 20230525
  Transmission Date: 20230721
  Serious: Yes (Other)
  Sender: FDA-Public Use
  Company Number: CA-002147023-NVSC2023CA054144

PATIENT
  Age: 51 Year
  Sex: Female

DRUGS (3)
  1. ERELZI [Suspect]
     Active Substance: ETANERCEPT-SZZS
     Indication: Product used for unknown indication
     Dosage: UNK
     Route: 065
  2. ENBREL [Suspect]
     Active Substance: ETANERCEPT
     Indication: Psoriatic arthropathy
     Dosage: 25 MG, (4 EVERY 1 WEEKS)
     Route: 065
  3. ENBREL [Suspect]
     Active Substance: ETANERCEPT
     Dosage: 25 MG, (4 EVERY 1 WEEKS)
     Route: 065

REACTIONS (3)
  - Psoriatic arthropathy [Unknown]
  - COVID-19 [Unknown]
  - Off label use [Unknown]
